FAERS Safety Report 11769311 (Version 7)
Quarter: 2016Q3

REPORT INFORMATION
  Report Type: Report from Study
  Country: ES (occurrence: ES)
  Receive Date: 20151123
  Receipt Date: 20160801
  Transmission Date: 20161109
  Serious: Yes (Hospitalization, Disabling, Other)
  Sender: FDA-Public Use
  Company Number: ES-GILEAD-2015-0179812

PATIENT
  Age: 85 Year
  Sex: Female
  Weight: 62.2 kg

DRUGS (35)
  1. RITUXIMAB [Suspect]
     Active Substance: RITUXIMAB
     Indication: CHRONIC LYMPHOCYTIC LEUKAEMIA
     Dosage: 650 MG, Q1WK
     Route: 042
     Dates: start: 20150304, end: 20150305
  2. RITUXIMAB [Suspect]
     Active Substance: RITUXIMAB
     Dosage: 650 MG, Q1WK
     Route: 042
     Dates: start: 20150318, end: 20150318
  3. PARACETAMOL [Concomitant]
     Active Substance: ACETAMINOPHEN
     Dosage: UNK
     Route: 048
     Dates: start: 20150417
  4. IBUPROFEN. [Concomitant]
     Active Substance: IBUPROFEN
     Route: 048
     Dates: start: 20150417
  5. SIMVASTATIN. [Concomitant]
     Active Substance: SIMVASTATIN
     Indication: HYPERCHOLESTEROLAEMIA
     Route: 048
  6. DOBUPAL [Concomitant]
     Active Substance: VENLAFAXINE HYDROCHLORIDE
     Route: 048
  7. LORAZEPAM. [Concomitant]
     Active Substance: LORAZEPAM
     Route: 048
  8. IDELALISIB [Suspect]
     Active Substance: IDELALISIB
     Dosage: 150 MG, BID
     Route: 048
     Dates: start: 20150304, end: 20150422
  9. RITUXIMAB [Suspect]
     Active Substance: RITUXIMAB
     Dosage: 650 MG, Q1WK
     Route: 042
     Dates: start: 20150325, end: 20150325
  10. AGOMELATINE [Concomitant]
     Active Substance: AGOMELATINE
     Dosage: UNK
     Route: 048
  11. AGOMELATINE [Concomitant]
     Active Substance: AGOMELATINE
     Route: 048
  12. OMEPRAZOLE. [Concomitant]
     Active Substance: OMEPRAZOLE
     Dosage: UNK
     Route: 048
  13. RITUXIMAB [Suspect]
     Active Substance: RITUXIMAB
     Dosage: 650 MG, Q1WK
     Route: 042
     Dates: start: 20150311, end: 20150311
  14. SIMVASTATIN. [Concomitant]
     Active Substance: SIMVASTATIN
     Route: 048
  15. DOBUPAL [Concomitant]
     Active Substance: VENLAFAXINE HYDROCHLORIDE
     Route: 048
  16. LORAZEPAM. [Concomitant]
     Active Substance: LORAZEPAM
     Route: 048
  17. IDELALISIB [Suspect]
     Active Substance: IDELALISIB
     Dosage: 150 MG, BID
     Route: 048
     Dates: start: 20151217
  18. TERTENSIF [Concomitant]
     Route: 048
  19. EPOETIN [Concomitant]
     Active Substance: ERYTHROPOIETIN
     Indication: ANAEMIA
     Dosage: UNK
     Route: 058
     Dates: start: 20150820, end: 20151015
  20. OMEPRAZOLE. [Concomitant]
     Active Substance: OMEPRAZOLE
     Dosage: UNK
     Route: 048
  21. TERTENSIF [Concomitant]
     Route: 048
  22. OMEPRAZOLE. [Concomitant]
     Active Substance: OMEPRAZOLE
     Dosage: UNK
     Route: 048
  23. IDELALISIB [Suspect]
     Active Substance: IDELALISIB
     Dosage: 150 UNK, UNK
     Route: 048
     Dates: start: 20160204, end: 20160315
  24. RITUXIMAB [Suspect]
     Active Substance: RITUXIMAB
     Dosage: 650 MG, Q1WK
     Route: 042
     Dates: start: 20150401, end: 20150401
  25. RITUXIMAB [Suspect]
     Active Substance: RITUXIMAB
     Dosage: 650 MG, Q1WK
     Route: 042
     Dates: start: 20150408, end: 20150408
  26. RITUXIMAB [Suspect]
     Active Substance: RITUXIMAB
     Dosage: 650 MG, Q1WK
     Route: 042
     Dates: start: 20150429, end: 20150429
  27. BROMAZEPAM [Concomitant]
     Active Substance: BROMAZEPAM
     Indication: ANXIETY
     Route: 048
     Dates: start: 201506
  28. OMEPRAZOLE. [Concomitant]
     Active Substance: OMEPRAZOLE
     Route: 048
  29. IDELALISIB [Suspect]
     Active Substance: IDELALISIB
     Indication: CHRONIC LYMPHOCYTIC LEUKAEMIA
     Dosage: 150 MG, BID
     Route: 048
     Dates: start: 20150429, end: 20151114
  30. RITUXIMAB [Suspect]
     Active Substance: RITUXIMAB
     Dosage: UNK
     Route: 042
  31. RITUXIMAB [Suspect]
     Active Substance: RITUXIMAB
     Route: 042
  32. ALMAGATE [Concomitant]
     Active Substance: ALMAGATE
     Indication: GASTROOESOPHAGEAL REFLUX DISEASE
     Route: 048
     Dates: start: 20150914
  33. IRON [Concomitant]
     Active Substance: IRON
     Route: 048
     Dates: start: 20151015
  34. OMEPRAZOLE. [Concomitant]
     Active Substance: OMEPRAZOLE
     Dosage: UNK
     Route: 048
  35. RITUXIMAB [Suspect]
     Active Substance: RITUXIMAB
     Dosage: 650 MG, Q1WK
     Route: 042
     Dates: start: 20150415, end: 20150415

REACTIONS (7)
  - Oral mucosal eruption [Recovered/Resolved]
  - Conjunctivitis [Recovered/Resolved]
  - Glossitis [Recovered/Resolved]
  - Gastrointestinal haemorrhage [Recovered/Resolved]
  - Psoriasis [Not Recovered/Not Resolved]
  - Agranulocytosis [Recovered/Resolved]
  - Oral candidiasis [Recovered/Resolved]

NARRATIVE: CASE EVENT DATE: 20151028
